FAERS Safety Report 4805975-4 (Version None)
Quarter: 2005Q4

REPORT INFORMATION
  Report Type: 
  Country: None (occurrence: None)
  Receive Date: 20051019
  Receipt Date: 20051019
  Transmission Date: 20060501
  Serious: Yes (Death)
  Sender: FDA-Public Use
  Company Number: None

PATIENT
  Age: 52 Year
  Sex: Male
  Weight: 56.246 kg

DRUGS (12)
  1. RITUXIMAB (RITUXAN) GENENTECH [Suspect]
     Indication: BURKITT'S LYMPHOMA
     Dosage: 600 MG IVPB
     Route: 042
     Dates: start: 20050412
  2. ALLOPURINOL [Concomitant]
  3. TYLENOL (CAPLET) [Concomitant]
  4. HYDROCORTISONE [Concomitant]
  5. BACTRIM [Concomitant]
  6. AZITHROMYCIN [Concomitant]
  7. ACYCLOVIR [Concomitant]
  8. LOVENOX [Concomitant]
  9. VICODIN [Concomitant]
  10. REGLAN [Concomitant]
  11. PREACID [Concomitant]
  12. DECADRON [Concomitant]

REACTIONS (5)
  - CARDIO-RESPIRATORY ARREST [None]
  - INFUSION RELATED REACTION [None]
  - RESPIRATORY FAILURE [None]
  - SEPTIC SHOCK [None]
  - TACHYCARDIA [None]
